FAERS Safety Report 25833267 (Version 1)
Quarter: 2025Q3

REPORT INFORMATION
  Report Type: Spontaneous
  Country: US (occurrence: US)
  Receive Date: 20250922
  Receipt Date: 20250922
  Transmission Date: 20251021
  Serious: Yes (Other)
  Sender: ELI LILLY AND COMPANY
  Company Number: US-ELI_LILLY_AND_COMPANY-US202509010750

PATIENT
  Age: 67 Year
  Sex: Female

DRUGS (1)
  1. MOUNJARO [Suspect]
     Active Substance: TIRZEPATIDE
     Indication: Product used for unknown indication
     Route: 065

REACTIONS (7)
  - Lymphoma [Unknown]
  - Cardiac failure congestive [Unknown]
  - Asthma [Unknown]
  - Peripheral nerve injury [Unknown]
  - Blood glucose fluctuation [Unknown]
  - Back disorder [Unknown]
  - Limb discomfort [Unknown]
